FAERS Safety Report 8112304-X (Version None)
Quarter: 2012Q1

REPORT INFORMATION
  Report Type: 
  Country: None (occurrence: None)
  Receive Date: 20120203
  Receipt Date: 20120203
  Transmission Date: 20120608
  Serious: Yes (Other)
  Sender: FDA-Public Use
  Company Number: None

PATIENT
  Age: 21 Year
  Sex: Female
  Weight: 55.791 kg

DRUGS (1)
  1. NORGESTIMATE AND ETHINYL ESTRADIOL [Suspect]
     Indication: CONTRACEPTION
     Dosage: 28 TABLETS
     Route: 048
     Dates: start: 20101030, end: 20120109

REACTIONS (3)
  - PREGNANCY ON ORAL CONTRACEPTIVE [None]
  - MATERNAL EXPOSURE DURING PREGNANCY [None]
  - PRODUCT QUALITY ISSUE [None]
